FAERS Safety Report 4512610-1 (Version None)
Quarter: 2004Q4

REPORT INFORMATION
  Report Type: 
  Country: None (occurrence: None)
  Receive Date: 20041008
  Receipt Date: 20040817
  Transmission Date: 20050328
  Serious: No
  Sender: FDA-Public Use
  Company Number: 2004S1000170

PATIENT
  Sex: 0

DRUGS (1)
  1. CUBICIN [Suspect]

REACTIONS (1)
  - CHILLS [None]
